FAERS Safety Report 14074464 (Version 1)
Quarter: 2017Q4

REPORT INFORMATION
  Report Type: Spontaneous
  Country: US (occurrence: US)
  Receive Date: 20171010
  Receipt Date: 20171010
  Transmission Date: 20180321
  Serious: No
  Sender: FDA-Public Use
  Company Number: US-009507513-1710USA001661

PATIENT
  Age: 76 Year
  Sex: Female

DRUGS (1)
  1. DIFICID [Suspect]
     Active Substance: FIDAXOMICIN
     Indication: CLOSTRIDIUM DIFFICILE COLITIS
     Dosage: 200 MG, ONE A DAY
     Route: 048
     Dates: start: 20170718, end: 20170806

REACTIONS (2)
  - Drug ineffective [Recovered/Resolved]
  - Probiotic therapy [Recovered/Resolved]

NARRATIVE: CASE EVENT DATE: 20170718
